FAERS Safety Report 8038081-9 (Version None)
Quarter: 2012Q1

REPORT INFORMATION
  Report Type: 
  Country: None (occurrence: None)
  Receive Date: 20120111
  Receipt Date: 20120109
  Transmission Date: 20120608
  Serious: Yes (Disabling)
  Sender: FDA-Public Use
  Company Number: US-MERCK-1108USA01142

PATIENT
  Age: 44 Year
  Sex: Female

DRUGS (2)
  1. FOSAMAX [Suspect]
     Indication: OSTEOPOROSIS
     Route: 048
     Dates: start: 19950101
  2. FOSAMAX PLUS D [Suspect]
     Indication: OSTEOPOROSIS
     Route: 048

REACTIONS (5)
  - FEMUR FRACTURE [None]
  - ANXIETY [None]
  - PANIC ATTACK [None]
  - COGNITIVE DISORDER [None]
  - DEPRESSION [None]
